FAERS Safety Report 5752607-7 (Version None)
Quarter: 2008Q2

REPORT INFORMATION
  Report Type: 
  Country: None (occurrence: None)
  Receive Date: 20080527
  Receipt Date: 20080527
  Transmission Date: 20081010
  Serious: Yes (Other)
  Sender: FDA-Public Use
  Company Number: None

PATIENT
  Age: 59 Year
  Sex: Male
  Weight: 141.5223 kg

DRUGS (2)
  1. TRICOR [Suspect]
     Indication: HYPERTRIGLYCERIDAEMIA
     Dosage: 48 DAILY PO
     Route: 048
     Dates: start: 20080201, end: 20080401
  2. TRICOR [Suspect]

REACTIONS (2)
  - ERYTHROMELALGIA [None]
  - RAYNAUD'S PHENOMENON [None]
